FAERS Safety Report 4913477-X (Version None)
Quarter: 2006Q1

REPORT INFORMATION
  Report Type: 
  Country: None (occurrence: None)
  Receive Date: 20060113
  Receipt Date: 20050316
  Transmission Date: 20060701
  Serious: Yes (Other)
  Sender: FDA-Public Use
  Company Number: HQWYE309717OCT03

PATIENT
  Age: 49 Year
  Sex: Female

DRUGS (3)
  1. PREMPRO [Suspect]
     Dosage: 0.625MG/2.5MG 1 TABLET MEDICATION FEB-2001, ORAL
     Route: 048
  2. PREMARIN [Suspect]
  3. PROVERA [Suspect]

REACTIONS (1)
  - BREAST CANCER [None]
